FAERS Safety Report 6770012-1 (Version None)
Quarter: 2010Q2

REPORT INFORMATION
  Report Type: 
  Country: None (occurrence: None)
  Receive Date: 20100615
  Receipt Date: 20100607
  Transmission Date: 20101027
  Serious: Yes (Other)
  Sender: FDA-Public Use
  Company Number: NL-NOVOPROD-307061

PATIENT
  Age: 48 Year
  Sex: Male

DRUGS (5)
  1. INSULATARD PENFILL [Suspect]
     Indication: TYPE 2 DIABETES MELLITUS
     Dosage: 22 IU, QD
     Dates: start: 19950101
  2. ACTRAPID PENFILL [Suspect]
     Indication: TYPE 2 DIABETES MELLITUS
     Dosage: 72 IU, QD
     Dates: start: 19950101
  3. QUINAPRIL [Concomitant]
     Dosage: 20 MG, QD
  4. AMLODIPINE [Concomitant]
     Dosage: 10 MG, QD
  5. SIMVASTATIN [Concomitant]
     Dosage: 20 MG, QD

REACTIONS (1)
  - CUTANEOUS AMYLOIDOSIS [None]
